FAERS Safety Report 25638469 (Version 1)
Quarter: 2025Q3

REPORT INFORMATION
  Report Type: Spontaneous
  Country: US (occurrence: US)
  Receive Date: 20250804
  Receipt Date: 20250804
  Transmission Date: 20251021
  Serious: Yes (Other)
  Sender: PFIZER
  Company Number: US-PFIZER INC-PV202500092042

PATIENT
  Age: 46 Year
  Sex: Male

DRUGS (3)
  1. LINEZOLID [Suspect]
     Active Substance: LINEZOLID
  2. CEFTAZIDIME [Suspect]
     Active Substance: CEFTAZIDIME
  3. CEFTAROLINE [Suspect]
     Active Substance: CEFTAROLINE

REACTIONS (1)
  - Thrombocytopenia [Unknown]
